FAERS Safety Report 13766380 (Version 1)
Quarter: 2017Q3

REPORT INFORMATION
  Report Type: Spontaneous
  Country: US (occurrence: US)
  Receive Date: 20170718
  Receipt Date: 20170718
  Transmission Date: 20171127
  Serious: Yes (Hospitalization)
  Sender: FDA-Public Use
  Company Number: None

PATIENT
  Sex: Female

DRUGS (11)
  1. AMANTADINE. [Concomitant]
     Active Substance: AMANTADINE HYDROCHLORIDE
  2. NUPLAZID [Suspect]
     Active Substance: PIMAVANSERIN TARTRATE
     Indication: PARKINSON^S DISEASE
     Route: 048
     Dates: start: 20161025
  3. VITAMIN D [Concomitant]
     Active Substance: CHOLECALCIFEROL
  4. SEROQUEL [Concomitant]
     Active Substance: QUETIAPINE FUMARATE
  5. BENZTROPINE [Concomitant]
     Active Substance: BENZTROPINE
  6. ZYPREXA [Concomitant]
     Active Substance: OLANZAPINE
  7. SINEMET [Concomitant]
     Active Substance: CARBIDOPA\LEVODOPA
  8. MINIPRESS [Concomitant]
     Active Substance: PRAZOSIN HYDROCHLORIDE
  9. TRILEPTAL [Concomitant]
     Active Substance: OXCARBAZEPINE
  10. METOPROLOL. [Concomitant]
     Active Substance: METOPROLOL
  11. NAMENDA [Concomitant]
     Active Substance: MEMANTINE HYDROCHLORIDE

REACTIONS (3)
  - Hallucination [None]
  - Drug interaction [None]
  - Incoherent [None]
